FAERS Safety Report 10709711 (Version 1)
Quarter: 2015Q1

REPORT INFORMATION
  Report Type: Spontaneous
  Country: US (occurrence: US)
  Receive Date: 20150114
  Receipt Date: 20150114
  Transmission Date: 20150721
  Serious: Yes (Death, Hospitalization)
  Sender: FDA-Public Use
  Company Number: US-BAYER-2015-003579

PATIENT
  Age: 49 Year
  Sex: Male

DRUGS (8)
  1. INSULIN [Suspect]
     Active Substance: INSULIN NOS
  2. ETHANOL [Suspect]
     Active Substance: ALCOHOL
     Route: 048
  3. ACETYLSALICYLIC ACID (} 100 MG) [Suspect]
     Active Substance: ASPIRIN
     Route: 048
  4. LISINOPRIL. [Suspect]
     Active Substance: LISINOPRIL
     Route: 048
  5. DISULFIRAM. [Suspect]
     Active Substance: DISULFIRAM
     Route: 048
  6. PAROXETINE [Suspect]
     Active Substance: PAROXETINE\PAROXETINE HYDROCHLORIDE
     Route: 048
  7. AMITRIPTYLINE [Suspect]
     Active Substance: AMITRIPTYLINE
     Route: 048
  8. HYDROCHLOROTHIAZIDE W/METOPROLOL [Suspect]
     Active Substance: HYDROCHLOROTHIAZIDE\METOPROLOL
     Route: 048

REACTIONS (1)
  - Toxicity to various agents [Fatal]
